FAERS Safety Report 13651954 (Version 1)
Quarter: 2017Q2

REPORT INFORMATION
  Report Type: Spontaneous
  Country: US (occurrence: US)
  Receive Date: 20170614
  Receipt Date: 20170614
  Transmission Date: 20170830
  Serious: Yes (Disabling)
  Sender: FDA-Public Use
  Company Number: None

PATIENT
  Age: 56 Year
  Sex: Female
  Weight: 63.45 kg

DRUGS (7)
  1. IMITREX [Concomitant]
     Active Substance: SUMATRIPTAN SUCCINATE
  2. CALCIUM [Concomitant]
     Active Substance: CALCIUM
  3. FISH OIL [Concomitant]
     Active Substance: FISH OIL
  4. MULTI-VIT [Concomitant]
     Active Substance: VITAMINS
  5. GINGER. [Concomitant]
     Active Substance: GINGER
  6. CIPROFLOXACIN. [Suspect]
     Active Substance: CIPROFLOXACIN
     Indication: URINARY TRACT INFECTION
     Dosage: ?          QUANTITY:14 TABLET(S);?
     Route: 048
     Dates: start: 20170609, end: 20170611
  7. TUMERIC [Concomitant]
     Active Substance: HERBALS\TURMERIC

REACTIONS (6)
  - Tendon pain [None]
  - Pain in extremity [None]
  - Burning sensation [None]
  - Musculoskeletal pain [None]
  - Pain in jaw [None]
  - Arthralgia [None]

NARRATIVE: CASE EVENT DATE: 20170611
